FAERS Safety Report 8598677-2 (Version None)
Quarter: 2012Q3

REPORT INFORMATION
  Report Type: 
  Country: None (occurrence: None)
  Receive Date: 20120816
  Receipt Date: 19880926
  Transmission Date: 20120928
  Serious: Yes (Other)
  Sender: FDA-Public Use
  Company Number: US-ROCHE-1099864

PATIENT
  Age: 51 Year
  Sex: Male

DRUGS (1)
  1. ACTIVASE [Suspect]
     Indication: ACUTE MYOCARDIAL INFARCTION

REACTIONS (5)
  - CHEST PAIN [None]
  - VOMITING [None]
  - NAUSEA [None]
  - SOMNOLENCE [None]
  - NECK PAIN [None]
